FAERS Safety Report 5011663-4 (Version None)
Quarter: 2006Q2

REPORT INFORMATION
  Report Type: 
  Country: None (occurrence: None)
  Receive Date: 20060526
  Receipt Date: 20060518
  Transmission Date: 20061013
  Serious: Yes (Hospitalization)
  Sender: FDA-Public Use
  Company Number: US-JNJFOC-20060504337

PATIENT
  Sex: Male

DRUGS (25)
  1. REMICADE [Suspect]
     Indication: RHEUMATOID ARTHRITIS
     Route: 042
  2. ASPIRIN [Concomitant]
  3. FOLIC ACID [Concomitant]
  4. IMDUR [Concomitant]
  5. KLONOPIN [Concomitant]
  6. LISINOPRIL [Concomitant]
  7. METHOTREXATE [Concomitant]
  8. MULTI-VITAMIN [Concomitant]
  9. MULTI-VITAMIN [Concomitant]
  10. MULTI-VITAMIN [Concomitant]
  11. MULTI-VITAMIN [Concomitant]
  12. MULTI-VITAMIN [Concomitant]
  13. MULTI-VITAMIN [Concomitant]
  14. MULTI-VITAMIN [Concomitant]
  15. MULTI-VITAMIN [Concomitant]
  16. OCUVIT [Concomitant]
  17. OCUVIT [Concomitant]
  18. OCUVIT [Concomitant]
  19. PREDNISONE TAB [Concomitant]
  20. SERTRALINE HCL [Concomitant]
  21. SIMVASTATIN [Concomitant]
  22. TYLENOL (GELTAB) [Concomitant]
  23. CALCIUM WITH D [Concomitant]
  24. CALCIUM WITH D [Concomitant]
  25. CALCIUM WITH D [Concomitant]

REACTIONS (1)
  - BLADDER CANCER [None]
